FAERS Safety Report 7983421-X (Version None)
Quarter: 2011Q4

REPORT INFORMATION
  Report Type: 
  Country: None (occurrence: None)
  Receive Date: 20111215
  Receipt Date: 20111208
  Transmission Date: 20120403
  Serious: Yes (Other)
  Sender: FDA-Public Use
  Company Number: CHPA2011JP14272

PATIENT
  Sex: Male

DRUGS (3)
  1. PURSENNID [Suspect]
     Indication: CONSTIPATION
     Dosage: UNK, UNK
     Route: 048
  2. GASMOTIN [Suspect]
     Dosage: UNK, UNK
     Route: 048
  3. MAGMITT KENEI [Suspect]
     Dosage: UNK, UNK
     Route: 048

REACTIONS (3)
  - INTESTINAL OBSTRUCTION [None]
  - STOMATITIS [None]
  - DRUG INEFFECTIVE [None]
